FAERS Safety Report 13388916 (Version 1)
Quarter: 2017Q1

REPORT INFORMATION
  Report Type: Report from Study
  Country: AU (occurrence: AU)
  Receive Date: 20170330
  Receipt Date: 20170330
  Transmission Date: 20170429
  Serious: Yes (Other)
  Sender: FDA-Public Use
  Company Number: AU-REGENERON PHARMACEUTICALS, INC.-2017-13854

PATIENT

DRUGS (2)
  1. INSULIN [INSULIN] [Concomitant]
     Active Substance: INSULIN NOS
     Indication: TYPE 2 DIABETES MELLITUS
  2. EYLEA [Suspect]
     Active Substance: AFLIBERCEPT
     Indication: DIABETIC RETINAL OEDEMA
     Dosage: ONCE A MONTH INTO LEFT EYE

REACTIONS (4)
  - Agitation [Not Recovered/Not Resolved]
  - Wound infection [Unknown]
  - Diabetes mellitus inadequate control [Not Recovered/Not Resolved]
  - Skin cancer [Not Recovered/Not Resolved]
